FAERS Safety Report 19400804 (Version 2)
Quarter: 2021Q2

REPORT INFORMATION
  Report Type: Report from Study
  Country: IT (occurrence: IT)
  Receive Date: 20210610
  Receipt Date: 20210617
  Transmission Date: 20210717
  Serious: Yes (Hospitalization)
  Sender: FDA-Public Use
  Company Number: IT-JNJFOC-20210607000

PATIENT
  Age: 66 Year
  Sex: Male
  Weight: 73 kg

DRUGS (9)
  1. SELEPARINA [Concomitant]
     Active Substance: NADROPARIN CALCIUM
     Indication: PROPHYLAXIS
     Dosage: DOSE: 3800 (UNITS NOT SPECIFIED)
     Route: 058
     Dates: start: 20210519, end: 20210531
  2. NORVASC [Concomitant]
     Active Substance: AMLODIPINE BESYLATE
     Indication: HYPERTENSION
     Route: 048
  3. DEXAMETHASONE. [Suspect]
     Active Substance: DEXAMETHASONE
     Indication: PLASMA CELL MYELOMA
     Dosage: 40 MG WEEKLY
     Route: 048
     Dates: start: 20210519, end: 20210526
  4. CEFIXIME. [Concomitant]
     Active Substance: CEFIXIME
     Indication: INFECTION PROPHYLAXIS
     Route: 048
     Dates: start: 20210518
  5. EPREX [Concomitant]
     Active Substance: ERYTHROPOIETIN
     Indication: ANAEMIA PROPHYLAXIS
     Dosage: 40000 (UNITS NOT SPECIFIED)
     Route: 058
     Dates: start: 20210520
  6. ACICLOVIR [Concomitant]
     Active Substance: ACYCLOVIR
     Indication: INFECTION PROPHYLAXIS
     Route: 048
  7. PANTOPRAZOLE [Concomitant]
     Active Substance: PANTOPRAZOLE
     Indication: PROPHYLAXIS
     Route: 048
  8. DARATUMUMAB [Suspect]
     Active Substance: DARATUMUMAB
     Indication: PLASMA CELL MYELOMA
     Route: 058
     Dates: start: 20210519, end: 20210526
  9. POMALIDOMIDE [Suspect]
     Active Substance: POMALIDOMIDE
     Indication: PLASMA CELL MYELOMA
     Dosage: 4 MG DAILY (1 ? 21 DAYS)
     Route: 048
     Dates: start: 20210519, end: 20210531

REACTIONS (1)
  - Febrile neutropenia [Recovered/Resolved]

NARRATIVE: CASE EVENT DATE: 20210601
